FAERS Safety Report 14035329 (Version 1)
Quarter: 2017Q4

REPORT INFORMATION
  Report Type: Spontaneous
  Country: US (occurrence: US)
  Receive Date: 20171003
  Receipt Date: 20171003
  Transmission Date: 20180321
  Serious: No
  Sender: FDA-Public Use
  Company Number: US-BAYER-2017-189028

PATIENT
  Age: 77 Year
  Sex: Female
  Weight: 56 kg

DRUGS (2)
  1. MIRALAX [Suspect]
     Active Substance: POLYETHYLENE GLYCOL 3350
     Indication: COLONOSCOPY
     Dosage: UNK UNK, ONCE
     Route: 048
     Dates: start: 20171002, end: 20171002
  2. MIRALAX [Suspect]
     Active Substance: POLYETHYLENE GLYCOL 3350
     Indication: COLONOSCOPY
     Dosage: UNK UNK, ONCE
     Route: 048
     Dates: start: 20171002, end: 20171002

REACTIONS (2)
  - Off label use [Unknown]
  - Product use in unapproved indication [Unknown]
